FAERS Safety Report 6673768-1 (Version None)
Quarter: 2010Q2

REPORT INFORMATION
  Report Type: 
  Country: None (occurrence: None)
  Receive Date: 20100407
  Receipt Date: 20100322
  Transmission Date: 20101027
  Serious: Yes (Hospitalization, Other)
  Sender: FDA-Public Use
  Company Number: TRP_06869_2010

PATIENT
  Sex: Male

DRUGS (9)
  1. RIBAPAK (NOT SPECIFIED) [Suspect]
     Indication: HEPATIC CIRRHOSIS
     Dosage: 600 BID ORAL
     Route: 048
     Dates: start: 20091017
  2. RIBAPAK (NOT SPECIFIED) [Suspect]
     Indication: HEPATITIS C
     Dosage: 600 BID ORAL
     Route: 048
     Dates: start: 20091017
  3. PEG-INTRON [Suspect]
     Indication: HEPATIC CIRRHOSIS
     Dosage: 150 UG 1X WEEK SUBCUTANEOUS
     Route: 058
     Dates: start: 20091017
  4. PEG-INTRON [Suspect]
     Indication: HEPATITIS C
     Dosage: 150 UG 1X WEEK SUBCUTANEOUS
     Route: 058
     Dates: start: 20091017
  5. NADOLOL [Concomitant]
  6. FOLIC ACID [Concomitant]
  7. LISINOPRIL [Concomitant]
  8. DECADRON / 00016002/ [Concomitant]
  9. GLUCOTROL XL [Concomitant]

REACTIONS (8)
  - AMNESIA [None]
  - ASTHENIA [None]
  - FEELING ABNORMAL [None]
  - GAIT DISTURBANCE [None]
  - HEPATIC ENCEPHALOPATHY [None]
  - INFLUENZA [None]
  - SOMNOLENCE [None]
  - TYPE 2 DIABETES MELLITUS [None]
